FAERS Safety Report 6415090-4 (Version None)
Quarter: 2009Q4

REPORT INFORMATION
  Report Type: 
  Country: None (occurrence: None)
  Receive Date: 20091022
  Receipt Date: 20091012
  Transmission Date: 20100525
  Serious: Yes (Other)
  Sender: FDA-Public Use
  Company Number: 2009AP004125

PATIENT
  Age: 29 Year
  Sex: Male

DRUGS (2)
  1. LAMOTRIGINE        (LAMOTRIGINE) [Suspect]
     Indication: BIPOLAR DISORDER
     Dosage: PO
     Route: 048
  2. VALPROATE SODIUM [Concomitant]

REACTIONS (6)
  - BLOOD TESTOSTERONE DECREASED [None]
  - BLOOD TESTOSTERONE FREE ABNORMAL [None]
  - CENTRAL OBESITY [None]
  - CUSHING'S SYNDROME [None]
  - VITAMIN D ABNORMAL [None]
  - WEIGHT INCREASED [None]
